FAERS Safety Report 18966864 (Version 2)
Quarter: 2021Q1

REPORT INFORMATION
  Report Type: Report from Study
  Country: CA (occurrence: CA)
  Receive Date: 20210303
  Receipt Date: 20210308
  Transmission Date: 20210420
  Serious: Yes (Other)
  Sender: FDA-Public Use
  Company Number: CA-JNJFOC-20210240501

PATIENT
  Age: 15 Year
  Sex: Female
  Weight: 67 kg

DRUGS (2)
  1. REMICADE [Suspect]
     Active Substance: INFLIXIMAB
     Dosage: ON 01?MAR?2021, THE PATIENT RECEIVED 6TH DOSE OF 700MG INFLIXIMAB INFUSION.
     Route: 042
  2. REMICADE [Suspect]
     Active Substance: INFLIXIMAB
     Indication: COLITIS ULCERATIVE
     Dosage: THE PATIENT^S INFUSION WAS DONE ON 20?JAN?2021
     Route: 042
     Dates: start: 20200529

REACTIONS (2)
  - Colitis ulcerative [Not Recovered/Not Resolved]
  - Drug specific antibody present [Unknown]
